FAERS Safety Report 16810067 (Version 1)
Quarter: 2019Q3

REPORT INFORMATION
  Report Type: Spontaneous
  Country: US (occurrence: US)
  Receive Date: 20190725
  Receipt Date: 20190725
  Transmission Date: 20191005
  Serious: Yes (Life-Threatening, Hospitalization)
  Sender: FDA-Public Use
  Company Number: None

PATIENT
  Age: 79 Year
  Sex: Female
  Weight: 59.42 kg

DRUGS (2)
  1. AZITHROMYCIN 250MG [Suspect]
     Active Substance: AZITHROMYCIN ANHYDROUS
     Dosage: ?          OTHER FREQUENCY:5 DAYS;?
     Dates: start: 20190624
  2. AZITHROMYCIN 250MG [Suspect]
     Active Substance: AZITHROMYCIN ANHYDROUS
     Indication: PNEUMONIA
     Dosage: ?          OTHER FREQUENCY:21 DAYS;?
     Route: 048
     Dates: start: 20190620

REACTIONS (5)
  - Rash [None]
  - Blister [None]
  - Pyrexia [None]
  - Influenza [None]
  - Dyspnoea [None]

NARRATIVE: CASE EVENT DATE: 20190620
